FAERS Safety Report 10655337 (Version 1)
Quarter: 2014Q4

REPORT INFORMATION
  Report Type: Spontaneous
  Country: PL (occurrence: PL)
  Receive Date: 20141216
  Receipt Date: 20141216
  Transmission Date: 20150529
  Serious: Yes (Other)
  Sender: FDA-Public Use
  Company Number: PHHY2014PL159279

PATIENT
  Age: 40 Year
  Sex: Female
  Weight: 63 kg

DRUGS (4)
  1. LEUCOVORIN CALCIUM. [Suspect]
     Active Substance: LEUCOVORIN CALCIUM
     Dosage: 334 OT, UNK
     Route: 042
     Dates: start: 20140915
  2. FLUOROURACIL EBEWE [Suspect]
     Active Substance: FLUOROURACIL
     Dosage: 1000 UNK, UNK
     Route: 041
     Dates: start: 20140915
  3. FLUOROURACIL EBEWE [Suspect]
     Active Substance: FLUOROURACIL
     Dosage: 668 OT, UNK
     Route: 040
  4. OXALIPLATIN. [Suspect]
     Active Substance: OXALIPLATIN
     Dosage: 140 OT, UNK
     Route: 042
     Dates: start: 20140915

REACTIONS (1)
  - Neutropenia [Recovering/Resolving]

NARRATIVE: CASE EVENT DATE: 20141117
